FAERS Safety Report 24647380 (Version 1)
Quarter: 2024Q4

REPORT INFORMATION
  Report Type: Spontaneous
  Country: US (occurrence: None)
  Receive Date: 20241121
  Receipt Date: 20241121
  Transmission Date: 20250114
  Serious: No
  Sender: Public
  Company Number: None

PATIENT
  Age: 42 Year
  Sex: Female

DRUGS (1)
  1. AMBRISENTAN [Suspect]
     Active Substance: AMBRISENTAN
     Indication: Pulmonary arterial hypertension
     Dosage: FREQUENCY : DAILY;?
     Route: 048

REACTIONS (7)
  - Inappropriate schedule of product administration [None]
  - Product distribution issue [None]
  - Diarrhoea [None]
  - Flushing [None]
  - Pain in jaw [None]
  - Nausea [None]
  - Fatigue [None]
